FAERS Safety Report 7861405-X (Version None)
Quarter: 2011Q4

REPORT INFORMATION
  Report Type: 
  Country: None (occurrence: None)
  Receive Date: 20111027
  Receipt Date: 20111020
  Transmission Date: 20120403
  Serious: Yes (Hospitalization)
  Sender: FDA-Public Use
  Company Number: FR-PFIZER INC-2011252744

PATIENT
  Age: 7 Year
  Sex: Male

DRUGS (2)
  1. CEFPODOXIME PROXETIL [Concomitant]
     Indication: SINUSITIS
     Dosage: UNK
     Route: 048
     Dates: start: 20110222, end: 20110201
  2. IBUPROFEN (ADVIL) [Suspect]
     Indication: PAIN
     Dosage: UNK, SINGLE
     Route: 048
     Dates: start: 20110223, end: 20110223

REACTIONS (2)
  - ERYTHEMA [None]
  - LIP OEDEMA [None]
